FAERS Safety Report 16140995 (Version 1)
Quarter: 2019Q2

REPORT INFORMATION
  Report Type: Spontaneous
  Country: US (occurrence: US)
  Receive Date: 20190330
  Receipt Date: 20190330
  Transmission Date: 20190711
  Serious: Yes (Life-Threatening, Hospitalization, Disabling)
  Sender: FDA-Public Use
  Company Number: None

PATIENT
  Age: 6 Year
  Sex: Male
  Weight: 19.8 kg

DRUGS (5)
  1. OMEPRAZOLE. [Concomitant]
     Active Substance: OMEPRAZOLE
  2. POTASSIUM CITRATE. [Concomitant]
     Active Substance: POTASSIUM CITRATE
  3. PHOS NAK [Concomitant]
  4. VITAMIN D3 [Concomitant]
     Active Substance: CHOLECALCIFEROL
  5. EXJADE [Suspect]
     Active Substance: DEFERASIROX
     Indication: THALASSAEMIA BETA
     Dosage: ?          QUANTITY:1.5 TABLET(S);?
     Route: 048
     Dates: start: 20181105, end: 20190227

REACTIONS (11)
  - Product prescribing issue [None]
  - Transfusion [None]
  - Haemoglobin decreased [None]
  - Constipation [None]
  - Duodenal ulcer haemorrhage [None]
  - Fanconi syndrome acquired [None]
  - Abdominal pain [None]
  - Metabolic acidosis [None]
  - Confusional state [None]
  - Pharyngitis streptococcal [None]
  - Rectal haemorrhage [None]

NARRATIVE: CASE EVENT DATE: 20190301
